FAERS Safety Report 6438844-7 (Version None)
Quarter: 2009Q4

REPORT INFORMATION
  Report Type: 
  Country: None (occurrence: None)
  Receive Date: 20091111
  Receipt Date: 20091111
  Transmission Date: 20100525
  Serious: Yes (Other)
  Sender: FDA-Public Use
  Company Number: None

PATIENT
  Age: 82 Year
  Sex: Female
  Weight: 75.7 kg

DRUGS (29)
  1. AMIDATE [Suspect]
     Indication: INDUCTION OF ANAESTHESIA
     Dosage: NOT REPORTED, UNKNOWN, INTRAVENOUS
     Route: 042
     Dates: start: 20081002, end: 20081002
  2. MIDAZOLAM HYDROCHLORIDE [Suspect]
     Indication: SEDATION
     Dosage: NOT REPORTED, UNKNOWN, INTRAVENOUS
     Route: 042
     Dates: start: 20081002, end: 20081002
  3. LINEZOLID [Suspect]
     Indication: PNEUMONIA
     Dosage: INTERVAL, BID ( UNKNOWN )
     Route: 042
     Dates: start: 20081002, end: 20081008
  4. VANCOMYCIN [Suspect]
     Dosage: INTERVAL, BID ( UNKNOWN )
     Route: 042
  5. COMBIVENT [Concomitant]
  6. FERROUS SULFATE TAB [Concomitant]
  7. ISOSORBIDE [Concomitant]
  8. ENOXAPARIN SODIUM [Concomitant]
  9. GUAIFENESIN [Concomitant]
  10. (NOVOLIN /00030501/) [Concomitant]
  11. PANTOPRAZOLE [Concomitant]
  12. (POLYCARBOPHIL) [Concomitant]
  13. SENNA-MINT WAF [Concomitant]
  14. AVELOX [Concomitant]
  15. CALCIUM GLUCONATE [Concomitant]
  16. (PERIDEX /00133002/) [Concomitant]
  17. (INSULIN GARGINE) [Concomitant]
  18. MONTELUKAST SODIUM [Concomitant]
  19. (SOTALOL) [Concomitant]
  20. (SIMVASTATIN-MEPHA) [Concomitant]
  21. FENTANYL-100 [Concomitant]
  22. KAYEXALATE [Concomitant]
  23. PREVACID [Concomitant]
  24. ZOSYN [Concomitant]
  25. DEXTROSE 50% [Concomitant]
  26. HYDRALAZINE HCL [Concomitant]
  27. (NOVOLIN /00030501/) [Concomitant]
  28. (MAGNEDIUM OXIDE) [Concomitant]
  29. (MEPREDNISONE) [Concomitant]

REACTIONS (4)
  - ALANINE AMINOTRANSFERASE INCREASED [None]
  - ASPARTATE AMINOTRANSFERASE INCREASED [None]
  - CARDIO-RESPIRATORY ARREST [None]
  - TRAUMATIC LIVER INJURY [None]
